FAERS Safety Report 8604748-4 (Version None)
Quarter: 2012Q3

REPORT INFORMATION
  Report Type: 
  Country: None (occurrence: None)
  Receive Date: 20120820
  Receipt Date: 20120813
  Transmission Date: 20120928
  Serious: Yes (Hospitalization)
  Sender: FDA-Public Use
  Company Number: FR-JNJFOC-20120604048

PATIENT
  Sex: Female

DRUGS (2)
  1. MICONAZOLE [Suspect]
     Route: 003
  2. MICONAZOLE [Suspect]
     Indication: FUNGAL INFECTION
     Route: 003
     Dates: start: 20120330, end: 20120403

REACTIONS (2)
  - ACUTE GENERALISED EXANTHEMATOUS PUSTULOSIS [None]
  - MYOCARDITIS [None]
